FAERS Safety Report 20660996 (Version 1)
Quarter: 2022Q1

REPORT INFORMATION
  Report Type: Spontaneous
  Country: US (occurrence: US)
  Receive Date: 20220331
  Receipt Date: 20220331
  Transmission Date: 20220424
  Serious: No
  Sender: FDA-Public Use
  Company Number: US-JNJFOC-20220348497

PATIENT

DRUGS (6)
  1. ZYRTEC [Suspect]
     Active Substance: CETIRIZINE HYDROCHLORIDE
     Indication: Allergic cough
     Route: 065
  2. IBRANCE [Concomitant]
     Active Substance: PALBOCICLIB
     Indication: Breast cancer
     Dosage: 100 MG DAILY FOR 21 DAYS
     Route: 048
     Dates: start: 202112
  3. FASLODEX [Concomitant]
     Active Substance: FULVESTRANT
     Indication: Product used for unknown indication
     Route: 065
  4. NEULASTA [Concomitant]
     Active Substance: PEGFILGRASTIM
     Indication: White blood cell count decreased
     Route: 065
  5. DEXALONE [DEXAMETHASONE] [Concomitant]
     Indication: Cough
     Route: 065
  6. DEXALONE [DEXAMETHASONE] [Concomitant]
     Indication: Gastrooesophageal reflux disease

REACTIONS (1)
  - Product use in unapproved indication [Unknown]
